FAERS Safety Report 7595783-6 (Version None)
Quarter: 2011Q3

REPORT INFORMATION
  Report Type: 
  Country: None (occurrence: None)
  Receive Date: 20110707
  Receipt Date: 20110706
  Transmission Date: 20111222
  Serious: Yes (Death)
  Sender: FDA-Public Use
  Company Number: US-PFIZER INC-2011145187

PATIENT
  Sex: Male

DRUGS (10)
  1. NEXIUM [Concomitant]
     Dosage: 40 MG, UNK
     Route: 048
  2. SPIRONOLACTONE [Concomitant]
     Dosage: 25 MG, UNK
     Route: 048
  3. TEMAZEPAM [Concomitant]
     Dosage: 15 MG, UNK
     Route: 048
  4. LISINOPRIL [Concomitant]
     Dosage: 10 MG, UNK
     Route: 048
  5. CREON [Concomitant]
     Dosage: 20 CAPSULE
     Route: 048
  6. OXYCODONE HCL AND ACETAMINOPHEN [Concomitant]
     Dosage: 7.5-325 TABLET
     Route: 048
  7. CARVEDILOL [Concomitant]
     Dosage: 6.25 MG, UNK
     Route: 048
  8. BENAZEPRIL [Concomitant]
     Dosage: 5 MG, UNK
     Route: 048
  9. ASPIRIN [Concomitant]
     Dosage: 81 MG, UNK
     Route: 048
  10. SUTENT [Suspect]
     Dosage: 37.5 MG, (12.5MG AND 25MG CAPSULES)  1X/DAY
     Route: 048

REACTIONS (1)
  - DEATH [None]
